FAERS Safety Report 6171831-5 (Version None)
Quarter: 2009Q2

REPORT INFORMATION
  Report Type: 
  Country: None (occurrence: None)
  Receive Date: 20090429
  Receipt Date: 20090423
  Transmission Date: 20091009
  Serious: Yes (Other)
  Sender: FDA-Public Use
  Company Number: IE-MEDIMMUNE-MEDI-0007452

PATIENT
  Age: 8 Month
  Sex: Male
  Weight: 7.037 kg

DRUGS (1)
  1. SYNAGIS [Suspect]
     Dosage: UNKNOWN
     Dates: start: 20081030, end: 20081030

REACTIONS (4)
  - CONVULSION [None]
  - EYE ROLLING [None]
  - NERVOUSNESS [None]
  - SCREAMING [None]
